FAERS Safety Report 6245061-2 (Version None)
Quarter: 2009Q2

REPORT INFORMATION
  Report Type: 
  Country: None (occurrence: None)
  Receive Date: 20090625
  Receipt Date: 20090615
  Transmission Date: 20091009
  Serious: Yes (Hospitalization)
  Sender: FDA-Public Use
  Company Number: US-ELI_LILLY_AND_COMPANY-US200610001883

PATIENT
  Sex: Male
  Weight: 147.39 kg

DRUGS (22)
  1. ZYPREXA [Suspect]
     Dosage: 20 MG, UNKNOWN
     Dates: start: 19980101, end: 20051201
  2. ZYPREXA [Suspect]
     Dosage: 10 MG, UNKNOWN
     Dates: start: 20051201, end: 20060301
  3. ZYPREXA [Suspect]
     Dosage: 15 MG, UNKNOWN
     Dates: start: 20030201, end: 20031125
  4. ZYPREXA [Suspect]
     Dosage: 20 MG, UNK
     Dates: start: 20031125, end: 20051220
  5. ZYPREXA [Suspect]
     Dosage: 10 MG, UNK
     Dates: start: 20051220, end: 20060327
  6. ZYPREXA [Suspect]
     Dosage: 15 MG, UNK
     Dates: start: 20060327
  7. ABILIFY [Concomitant]
     Dosage: UNK, UNKNOWN
     Dates: start: 20051201
  8. WELLBUTRIN [Concomitant]
     Dosage: 150 MG, UNKNOWN
     Dates: start: 20040401, end: 20040913
  9. WELLBUTRIN [Concomitant]
     Dosage: 300 MG, UNK
     Dates: start: 20040913
  10. PAXIL [Concomitant]
     Dosage: 20 MG, UNKNOWN
     Dates: start: 20030201, end: 20030717
  11. PAXIL [Concomitant]
     Dosage: 37.5 MG, UNK
     Dates: start: 20030717, end: 20050513
  12. PAXIL [Concomitant]
     Dosage: 30 MG, UNK
     Dates: start: 20050513, end: 20050623
  13. PAXIL [Concomitant]
     Dosage: 40 MG, UNK
     Dates: start: 20050623
  14. CHLORPROMANYL [Concomitant]
     Dosage: 100 MG/KG, UNK
  15. TEGRETOL [Concomitant]
     Dosage: 200 MG, UNK
  16. CLONAZEPAM [Concomitant]
     Dosage: 1 MG, UNK
     Dates: end: 20040106
  17. CLONAZEPAM [Concomitant]
     Dosage: 2 MG, UNK
     Dates: start: 20040106
  18. TEMAZEPAM [Concomitant]
     Dosage: 15 MG, UNK
     Dates: start: 20050701, end: 20050920
  19. TEMAZEPAM [Concomitant]
     Dosage: 30 MG, UNK
     Dates: start: 20050920
  20. TRAZODIL [Concomitant]
     Dosage: 100 MG, UNK
     Dates: start: 20050923
  21. CYMBALTA [Concomitant]
     Dosage: 60 MG, UNK
     Dates: start: 20051220
  22. LORAZEPAM [Concomitant]
     Dosage: 1 MG, UNK
     Dates: start: 20060327

REACTIONS (9)
  - BLOOD CHOLESTEROL INCREASED [None]
  - BLOOD TRIGLYCERIDES INCREASED [None]
  - CELLULITIS [None]
  - CHEST PAIN [None]
  - HYPERTENSION [None]
  - NEUROPATHY PERIPHERAL [None]
  - OBESITY [None]
  - SKIN ULCER [None]
  - TYPE 2 DIABETES MELLITUS [None]
